FAERS Safety Report 8327843-6 (Version None)
Quarter: 2012Q2

REPORT INFORMATION
  Report Type: 
  Country: None (occurrence: None)
  Receive Date: 20120502
  Receipt Date: 20120418
  Transmission Date: 20120825
  Serious: Yes (Other)
  Sender: FDA-Public Use
  Company Number: CN-JNJFOC-20120414414

PATIENT
  Sex: Male
  Weight: 60 kg

DRUGS (1)
  1. FENTANYL-100 [Suspect]
     Indication: COLON CANCER
     Route: 062
     Dates: start: 20111019, end: 20111019

REACTIONS (5)
  - INAPPROPRIATE SCHEDULE OF DRUG ADMINISTRATION [None]
  - IRRITABILITY [None]
  - DRUG PRESCRIBING ERROR [None]
  - INITIAL INSOMNIA [None]
  - MANIA [None]
